FAERS Safety Report 6885626-8 (Version None)
Quarter: 2010Q3

REPORT INFORMATION
  Report Type: 
  Country: None (occurrence: None)
  Receive Date: 20100729
  Receipt Date: 20080822
  Transmission Date: 20110219
  Serious: No
  Sender: FDA-Public Use
  Company Number: US-PFIZER INC-2008071243

PATIENT
  Sex: Female
  Weight: 136.4 kg

DRUGS (6)
  1. ACCUPRIL [Suspect]
     Indication: HYPERTENSION
     Dates: start: 20060101
  2. CRESTOR [Concomitant]
  3. METFORMIN HYDROCHLORIDE [Concomitant]
  4. PLAVIX [Concomitant]
  5. SITAGLIPTIN [Concomitant]
  6. COREG [Concomitant]

REACTIONS (2)
  - PRURITUS [None]
  - RASH [None]
